FAERS Safety Report 14913569 (Version 2)
Quarter: 2018Q3

REPORT INFORMATION
  Report Type: Spontaneous
  Country: DE (occurrence: DE)
  Receive Date: 20180518
  Receipt Date: 20180921
  Transmission Date: 20181010
  Serious: Yes (Hospitalization)
  Sender: FDA-Public Use
  Company Number: DE-PFIZER INC-2018201557

PATIENT
  Age: 87 Year
  Sex: Female

DRUGS (8)
  1. IBUPROFEN. [Suspect]
     Active Substance: IBUPROFEN
     Dosage: 600 MG, 1?0?1?0
  2. VOLTAREN [Concomitant]
     Active Substance: DICLOFENAC SODIUM
     Dosage: UNK, AS NEEDED
  3. TORASEMIDE [Concomitant]
     Active Substance: TORSEMIDE
     Dosage: 10 MG, 1X/DAY
  4. SIMVASTATIN. [Concomitant]
     Active Substance: SIMVASTATIN
     Dosage: 40 MG, 0?0?1?0
  5. LOPERAMID [Concomitant]
     Active Substance: LOPERAMIDE
     Dosage: UNK, AS NEEDED
  6. CARMEN [Concomitant]
     Active Substance: LERCANIDIPINE
     Dosage: 10 MG, 1?0?1?0
  7. VALSARTAN. [Concomitant]
     Active Substance: VALSARTAN
     Indication: PRODUCT USED FOR UNKNOWN INDICATION
     Dosage: 160 MG, 1?0?0.5?0
  8. NOCTAMID [Concomitant]
     Active Substance: LORMETAZEPAM
     Dosage: 1 MG, 0?0?0?1

REACTIONS (7)
  - Drug prescribing error [Unknown]
  - Dizziness [Unknown]
  - Nausea [Unknown]
  - Restlessness [Unknown]
  - Tremor [Unknown]
  - Vomiting [Unknown]
  - Hypertension [Unknown]
